FAERS Safety Report 5839019-2 (Version None)
Quarter: 2008Q3

REPORT INFORMATION
  Report Type: 
  Country: None (occurrence: None)
  Receive Date: 20080808
  Receipt Date: 20080424
  Transmission Date: 20090109
  Serious: No
  Sender: FDA-Public Use
  Company Number: US-BOEHRINGER INGELHEIM GMBH, GERMANY-2007-BP-16614BP

PATIENT
  Sex: Female
  Weight: 61 kg

DRUGS (5)
  1. MIRAPEX [Suspect]
     Indication: RESTLESS LEGS SYNDROME
     Route: 048
     Dates: start: 20020101
  2. HYDROCHLOROTHIAZIDE [Concomitant]
     Route: 048
     Dates: start: 20060127, end: 20070703
  3. LEVOTHYROXINE SODIUM [Concomitant]
     Route: 048
     Dates: start: 20060214, end: 20060724
  4. K-TAB [Concomitant]
     Route: 048
     Dates: start: 20050921, end: 20060621
  5. ASPIRIN [Concomitant]
     Dates: start: 20050406, end: 20070406

REACTIONS (5)
  - ANXIETY [None]
  - COMPULSIVE SHOPPING [None]
  - EMOTIONAL DISTRESS [None]
  - HYPERPHAGIA [None]
  - PATHOLOGICAL GAMBLING [None]
